FAERS Safety Report 17908226 (Version 1)
Quarter: 2020Q2

REPORT INFORMATION
  Report Type: Other
  Country: CA (occurrence: CA)
  Receive Date: 20200617
  Receipt Date: 20200617
  Transmission Date: 20200714
  Serious: Yes (Other)
  Sender: FDA-Public Use
  Company Number: CA-BECTON DICKINSON-2020BDN00155

PATIENT
  Age: 42 Year
  Sex: Female
  Weight: 81 kg

DRUGS (33)
  1. ENBREL [Suspect]
     Active Substance: ETANERCEPT
     Indication: RHEUMATOID ARTHRITIS
     Route: 058
  2. ORENCIA [Suspect]
     Active Substance: ABATACEPT
  3. HYDROXYCHLOROQUINE [Concomitant]
     Active Substance: HYDROXYCHLOROQUINE
  4. PLAQUENIL [Concomitant]
     Active Substance: HYDROXYCHLOROQUINE SULFATE
  5. CIMZIA [Suspect]
     Active Substance: CERTOLIZUMAB PEGOL
     Dosage: 400 MG, 2X/MONTH
     Route: 058
  6. OXYCODONE TEREPHTHALATE [Suspect]
     Active Substance: OXYCODONE TEREPHTHALATE
  7. CHOLECALCIFEROL [Concomitant]
     Active Substance: CHOLECALCIFEROL
  8. PREDNISONE. [Concomitant]
     Active Substance: PREDNISONE
  9. ZOPICLONE [Concomitant]
     Active Substance: ZOPICLONE
  10. CHLORHEXIDINE [Suspect]
     Active Substance: CHLORHEXIDINE
     Dosage: UNK
  11. CIMZIA [Suspect]
     Active Substance: CERTOLIZUMAB PEGOL
     Dosage: 400 MG
  12. DESOGESTREL/ETHINYL ESTRADIOL [Concomitant]
     Active Substance: DESOGESTREL\ETHINYL ESTRADIOL
  13. TEA [Concomitant]
     Active Substance: TEA LEAF
  14. TYLENOL [Concomitant]
     Active Substance: ACETAMINOPHEN
  15. CHLORHEXIDINE GLUCONATE ORAL RINSE [Suspect]
     Active Substance: CHLORHEXIDINE GLUCONATE
  16. METHOTREXATE. [Suspect]
     Active Substance: METHOTREXATE
  17. SIMPONI [Suspect]
     Active Substance: GOLIMUMAB
     Route: 058
  18. SULFAMETHOXAZOLE AND TRIMETHOPRIM [Suspect]
     Active Substance: SULFAMETHOXAZOLE\TRIMETHOPRIM
  19. REACTINE [Concomitant]
  20. VITAMIN C [Concomitant]
     Active Substance: ASCORBIC ACID
  21. ACTEMRA [Suspect]
     Active Substance: TOCILIZUMAB
  22. ARAVA [Suspect]
     Active Substance: LEFLUNOMIDE
  23. IBUPROFEN. [Concomitant]
     Active Substance: IBUPROFEN
  24. ONE ALPHA [Concomitant]
     Active Substance: ALFACALCIDOL
  25. PANTOPRAZOLE [Concomitant]
     Active Substance: PANTOPRAZOLE
  26. VENTOLIN [Concomitant]
     Active Substance: ALBUTEROL SULFATE
  27. VITAMIN D [Concomitant]
     Active Substance: VITAMIN D NOS
  28. ACETAMINOPHEN. [Suspect]
     Active Substance: ACETAMINOPHEN
  29. LEFLUNOMIDE. [Suspect]
     Active Substance: LEFLUNOMIDE
  30. COENZYME Q10 [Concomitant]
     Active Substance: UBIDECARENONE
  31. CIMZIA [Suspect]
     Active Substance: CERTOLIZUMAB PEGOL
     Dosage: 200 MG, 2X/MONTH
     Route: 058
  32. FISH OIL [Concomitant]
     Active Substance: FISH OIL
  33. OXYCODONE [Suspect]
     Active Substance: OXYCODONE

REACTIONS (20)
  - Night sweats [Recovered/Resolved]
  - Diarrhoea [Recovered/Resolved]
  - Muscle spasticity [Recovered/Resolved]
  - Pain [Recovered/Resolved]
  - Rash [Recovered/Resolved]
  - Ear pain [Recovered/Resolved]
  - Insomnia [Recovered/Resolved]
  - Body temperature increased [Recovered/Resolved]
  - Peripheral swelling [Recovered/Resolved]
  - Headache [Recovered/Resolved]
  - Abdominal pain upper [Recovered/Resolved]
  - Vomiting [Recovered/Resolved]
  - Respiratory disorder [Recovered/Resolved]
  - Sinusitis [Recovered/Resolved]
  - Asthenia [Recovered/Resolved]
  - Back pain [Recovered/Resolved]
  - Contraindicated product administered [Recovered/Resolved]
  - Joint swelling [Recovered/Resolved]
  - Pruritus [Recovered/Resolved]
  - Urticaria [Recovered/Resolved]
